FAERS Safety Report 8553385-9 (Version None)
Quarter: 2012Q3

REPORT INFORMATION
  Report Type: 
  Country: None (occurrence: None)
  Receive Date: 20120731
  Receipt Date: 20120719
  Transmission Date: 20120928
  Serious: Yes (Hospitalization)
  Sender: FDA-Public Use
  Company Number: JP-ELI_LILLY_AND_COMPANY-JP201201004125

PATIENT
  Sex: Female

DRUGS (3)
  1. WARFARIN POTASSIUM [Concomitant]
     Indication: AORTIC ARTERIOSCLEROSIS
     Route: 048
  2. FORTEO [Suspect]
     Dosage: UNK, EACH EVENING
     Route: 058
  3. FORTEO [Suspect]
     Dosage: UNK UNK, EACH EVENING
     Route: 058
     Dates: start: 20111207

REACTIONS (2)
  - FEMUR FRACTURE [None]
  - INJECTION SITE HAEMATOMA [None]
